FAERS Safety Report 4990283-1 (Version None)
Quarter: 2006Q2

REPORT INFORMATION
  Report Type: 
  Country: None (occurrence: None)
  Receive Date: 20060503
  Receipt Date: 20060424
  Transmission Date: 20061013
  Serious: Yes (Hospitalization)
  Sender: FDA-Public Use
  Company Number: DK-GLAXOSMITHKLINE-B0421974A

PATIENT
  Age: 44 Year
  Sex: Female
  Weight: 55 kg

DRUGS (4)
  1. ZOFRAN [Suspect]
     Indication: NAUSEA
     Dosage: 16MG UNKNOWN
     Route: 048
     Dates: start: 20060410, end: 20060410
  2. VOGALENE [Concomitant]
     Indication: DRUG USE FOR UNKNOWN INDICATION
     Dosage: 30MG UNKNOWN
     Route: 065
     Dates: start: 20060410, end: 20060410
  3. PREDNISOLONE [Concomitant]
     Indication: DRUG USE FOR UNKNOWN INDICATION
     Dosage: 100MG UNKNOWN
     Route: 065
     Dates: start: 20060410, end: 20060410
  4. LORAZEPAM [Concomitant]
     Indication: DRUG USE FOR UNKNOWN INDICATION
     Dosage: 1MG UNKNOWN
     Route: 065
     Dates: start: 20060410, end: 20060410

REACTIONS (7)
  - BRADYCARDIA [None]
  - CHEST DISCOMFORT [None]
  - COLD SWEAT [None]
  - ECG SIGNS OF MYOCARDIAL ISCHAEMIA [None]
  - EXTRASYSTOLES [None]
  - FEELING COLD [None]
  - HYPERTENSION [None]
